FAERS Safety Report 22041348 (Version 2)
Quarter: 2023Q1

REPORT INFORMATION
  Report Type: Spontaneous
  Country: JP (occurrence: JP)
  Receive Date: 20230227
  Receipt Date: 20230302
  Transmission Date: 20230418
  Serious: Yes (Death, Other)
  Sender: FDA-Public Use
  Company Number: JP-GSKJP-JP2023JPN028821AA

PATIENT

DRUGS (11)
  1. FLOLAN [Suspect]
     Active Substance: EPOPROSTENOL SODIUM
     Indication: Pulmonary veno-occlusive disease
     Dosage: THE DOSAGE WAS GRADUALLY INCREASED TO 20 NG/KG/MIN
     Route: 042
  2. IDARUBICIN HYDROCHLORIDE [Concomitant]
     Active Substance: IDARUBICIN HYDROCHLORIDE
     Indication: Acute myeloid leukaemia
     Dosage: UNK
  3. CYTARABINE [Concomitant]
     Active Substance: CYTARABINE
     Indication: Acute myeloid leukaemia
     Dosage: UNK
  4. GILTERITINIB [Concomitant]
     Active Substance: GILTERITINIB
     Indication: Acute myeloid leukaemia
     Dosage: UNK
  5. FUROSEMIDE [Concomitant]
     Active Substance: FUROSEMIDE
     Dosage: UNK
  6. TOLVAPTAN [Concomitant]
     Active Substance: TOLVAPTAN
     Dosage: UNK
  7. EPLERENONE [Concomitant]
     Active Substance: EPLERENONE
     Dosage: UNK
  8. OXYGEN [Concomitant]
     Active Substance: OXYGEN
     Dosage: 4L/MIN
     Route: 050
  9. DEXAMETHASONE [Concomitant]
     Active Substance: DEXAMETHASONE
     Dosage: 4 MG
  10. METHYLPREDNISOLONE [Concomitant]
     Active Substance: METHYLPREDNISOLONE
     Indication: Pulmonary hypertension
     Dosage: 1000 MG
  11. METHYLPREDNISOLONE [Concomitant]
     Active Substance: METHYLPREDNISOLONE
     Dosage: 80 MG

REACTIONS (3)
  - Pulmonary oedema [Unknown]
  - Pulmonary veno-occlusive disease [Fatal]
  - Drug ineffective [Unknown]
